FAERS Safety Report 8725118 (Version 2)
Quarter: 2013Q1

REPORT INFORMATION
  Report Type: Spontaneous
  Country: US (occurrence: US)
  Receive Date: 20120815
  Receipt Date: 20130321
  Transmission Date: 20140127
  Serious: Yes (Congenital Anomaly)
  Sender: FDA-Public Use
  Company Number: US-GLAXOSMITHKLINE-A0989557A

PATIENT
  Age: 0 Year
  Sex: Female

DRUGS (1)
  1. PAXIL [Suspect]
     Dosage: 20MG UNKNOWN
     Route: 064

REACTIONS (3)
  - Atrial septal defect [Unknown]
  - Dilatation ventricular [Unknown]
  - Foetal exposure during pregnancy [Unknown]
